FAERS Safety Report 9971536 (Version 1)
Quarter: 2014Q1

REPORT INFORMATION
  Report Type: Spontaneous
  Country: US (occurrence: US)
  Receive Date: 20140306
  Receipt Date: 20140306
  Transmission Date: 20141002
  Serious: No
  Sender: FDA-Public Use
  Company Number: US-ABBVIE-13P-163-1149913-00

PATIENT
  Age: 51 Year
  Sex: Female
  Weight: 51.3 kg

DRUGS (4)
  1. HUMIRA [Suspect]
     Indication: CROHN^S DISEASE
     Dates: start: 2012, end: 2012
  2. HUMIRA [Suspect]
     Dates: start: 2012
  3. ASACOL [Concomitant]
     Indication: RHEUMATOID ARTHRITIS
  4. PROZAC [Concomitant]
     Indication: DEPRESSION

REACTIONS (6)
  - Drug administration error [Not Recovered/Not Resolved]
  - Incorrect product storage [Not Recovered/Not Resolved]
  - Diarrhoea [Not Recovered/Not Resolved]
  - Faeces discoloured [Not Recovered/Not Resolved]
  - Abdominal distension [Not Recovered/Not Resolved]
  - Stress [Unknown]
